FAERS Safety Report 9941790 (Version 1)
Quarter: 2014Q1

REPORT INFORMATION
  Report Type: Report from Study
  Country: US (occurrence: US)
  Receive Date: 20140303
  Receipt Date: 20140303
  Transmission Date: 20141002
  Serious: No
  Sender: FDA-Public Use
  Company Number: US-ABBVIE-13P-163-1042845-00

PATIENT
  Age: 48 Year
  Sex: Female
  Weight: 118.04 kg

DRUGS (14)
  1. HUMIRA [Suspect]
     Indication: RHEUMATOID ARTHRITIS
  2. FOLIC ACID [Concomitant]
     Indication: CEREBROVASCULAR ACCIDENT
  3. ASPIRIN [Concomitant]
     Indication: CEREBROVASCULAR ACCIDENT
  4. B12 [Concomitant]
     Indication: GASTRIC BYPASS
  5. FERROUS SULFATE [Concomitant]
     Indication: ANAEMIA
  6. QVAR [Concomitant]
     Indication: ASTHMA
  7. XOPENEX [Concomitant]
     Indication: ASTHMA
  8. SYNTHROID [Concomitant]
     Indication: HYPOTHYROIDISM
  9. LIDODERM [Concomitant]
     Indication: BACK PAIN
  10. PRILOSEC [Concomitant]
     Indication: GASTRIC BYPASS
     Dates: start: 2005
  11. PHENERGAN [Concomitant]
     Indication: NAUSEA
     Dates: start: 2005
  12. LISINOPRIL [Concomitant]
     Indication: BLOOD PRESSURE
  13. PERI COLACE [Concomitant]
     Indication: CONSTIPATION
  14. HUMALOG [Concomitant]
     Indication: DIABETES MELLITUS

REACTIONS (6)
  - Drug dose omission [Unknown]
  - Oedema peripheral [Not Recovered/Not Resolved]
  - Back pain [Not Recovered/Not Resolved]
  - Bronchitis [Recovering/Resolving]
  - Alopecia [Recovering/Resolving]
  - Skin discolouration [Not Recovered/Not Resolved]
